FAERS Safety Report 23053029 (Version 3)
Quarter: 2023Q4

REPORT INFORMATION
  Report Type: Spontaneous
  Country: JP (occurrence: JP)
  Receive Date: 20231011
  Receipt Date: 20231201
  Transmission Date: 20240110
  Serious: Yes (Other)
  Sender: FDA-Public Use
  Company Number: JP-ALXN-A202312945AA

PATIENT
  Sex: Male
  Weight: 64.5 kg

DRUGS (1)
  1. ULTOMIRIS [Suspect]
     Active Substance: RAVULIZUMAB-CWVZ
     Indication: Paroxysmal nocturnal haemoglobinuria
     Dosage: 3300 MG, Q56
     Route: 042
     Dates: start: 20220201

REACTIONS (3)
  - COVID-19 pneumonia [Unknown]
  - Emphysema [Unknown]
  - Dyspnoea [Unknown]
